FAERS Safety Report 4732386-2 (Version None)
Quarter: 2005Q3

REPORT INFORMATION
  Report Type: 
  Country: None (occurrence: None)
  Receive Date: 20050721
  Receipt Date: 20050523
  Transmission Date: 20060218
  Serious: No
  Sender: FDA-Public Use
  Company Number: 2005SP000898

PATIENT
  Age: 91 Year
  Sex: Male
  Weight: 65.318 kg

DRUGS (16)
  1. LUNESTA [Suspect]
     Indication: INSOMNIA
     Dosage: SEE IMAGE
     Route: 048
     Dates: start: 20050501, end: 20050501
  2. LUNESTA [Suspect]
     Indication: INSOMNIA
     Dosage: SEE IMAGE
     Route: 048
     Dates: start: 20050501
  3. LUNESTA [Suspect]
     Indication: INSOMNIA
     Dosage: SEE IMAGE
     Route: 048
     Dates: start: 20050501
  4. AMBIEN [Concomitant]
  5. CIMETIDINE [Concomitant]
  6. ATENOLOL [Concomitant]
  7. TAMSULOSIN HYDROCHLORIDE [Concomitant]
  8. ... [Concomitant]
  9. PROSCAR [Concomitant]
  10. LISINOPRIL [Concomitant]
  11. WARFARIN [Concomitant]
  12. DIGOXIN [Concomitant]
  13. FUROSEMIDE [Concomitant]
  14. MINOCYCLINE HCL [Concomitant]
  15. XALATAN [Concomitant]
  16. ALPHAGAN [Concomitant]

REACTIONS (2)
  - DRUG INEFFECTIVE [None]
  - MIDDLE INSOMNIA [None]
